FAERS Safety Report 7351045-3 (Version None)
Quarter: 2011Q1

REPORT INFORMATION
  Report Type: 
  Country: None (occurrence: None)
  Receive Date: 20110314
  Receipt Date: 20110303
  Transmission Date: 20110831
  Serious: Yes (Other)
  Sender: FDA-Public Use
  Company Number: CA-JNJFOC-20110301234

PATIENT
  Sex: Female
  Weight: 99.79 kg

DRUGS (5)
  1. AMOXICILLIN [Concomitant]
  2. CILAZAPRIL [Concomitant]
  3. METFORMIN [Concomitant]
  4. STELARA [Suspect]
     Indication: PSORIASIS
     Route: 058
     Dates: start: 20090810, end: 20101125
  5. PREDNISONE [Concomitant]

REACTIONS (1)
  - LEUKOCYTOCLASTIC VASCULITIS [None]
